FAERS Safety Report 5466855-7 (Version None)
Quarter: 2007Q3

REPORT INFORMATION
  Report Type: 
  Country: None (occurrence: None)
  Receive Date: 20070925
  Receipt Date: 20070917
  Transmission Date: 20080115
  Serious: Yes (Hospitalization)
  Sender: FDA-Public Use
  Company Number: GB-AVENTIS-200718581GDDC

PATIENT
  Age: 69 Year
  Sex: Male

DRUGS (5)
  1. METRONIDAZOLE [Suspect]
     Indication: ORAL INFECTION
     Route: 048
     Dates: start: 20070812
  2. AMLODIPINE [Concomitant]
     Indication: ANGINA PECTORIS
     Route: 048
     Dates: start: 19960101
  3. CLOPIDOGREL [Concomitant]
     Indication: HYPERTENSION
     Route: 048
     Dates: start: 19960101
  4. LOSARTAN POSTASSIUM [Concomitant]
     Indication: AORTIC STENOSIS
     Route: 048
     Dates: start: 19960101
  5. SIMVASTATIN [Concomitant]
     Route: 048
     Dates: start: 19960101

REACTIONS (2)
  - GAIT DISTURBANCE [None]
  - HYPOAESTHESIA [None]
